FAERS Safety Report 10238789 (Version 2)
Quarter: 2014Q2

REPORT INFORMATION
  Report Type: Spontaneous
  Country: US (occurrence: US)
  Receive Date: 20140616
  Receipt Date: 20140616
  Transmission Date: 20141212
  Serious: Yes (Death, Hospitalization, Other)
  Sender: FDA-Public Use
  Company Number: US-009507513-2008-185204-NL

PATIENT
  Sex: Female
  Weight: 52.2 kg

DRUGS (4)
  1. NUVARING [Suspect]
     Indication: CONTRACEPTION
     Dosage: 1 DF, UNK
     Route: 067
     Dates: start: 20080118, end: 200802
  2. NUVARING [Suspect]
     Indication: MENSTRUATION IRREGULAR
  3. NUVARING [Suspect]
     Indication: DYSMENORRHOEA
  4. NUVARING [Suspect]
     Indication: MENORRHAGIA

REACTIONS (32)
  - Disseminated intravascular coagulation [Fatal]
  - Multi-organ failure [Fatal]
  - Sickle cell anaemia with crisis [Fatal]
  - Thrombosis [Fatal]
  - Cardio-respiratory arrest [Recovered/Resolved]
  - Respiratory failure [Fatal]
  - Pneumonia [Unknown]
  - Atelectasis [Unknown]
  - Pericardial effusion [Not Recovered/Not Resolved]
  - Hepatomegaly [Not Recovered/Not Resolved]
  - Ileus [Unknown]
  - Pleural effusion [Not Recovered/Not Resolved]
  - Pulmonary oedema [Unknown]
  - Cardiomegaly [Not Recovered/Not Resolved]
  - Cholecystitis [Unknown]
  - Duodenal ulcer [Unknown]
  - Post procedural haematoma [Not Recovered/Not Resolved]
  - Sepsis [Unknown]
  - Hiatus hernia [Unknown]
  - Cholelithiasis [Unknown]
  - Renal cyst [Unknown]
  - Pyrexia [Unknown]
  - Gastrooesophageal reflux disease [Recovering/Resolving]
  - Upper respiratory tract infection [Unknown]
  - Hyperbilirubinaemia [Not Recovered/Not Resolved]
  - Metabolic acidosis [Not Recovered/Not Resolved]
  - Infarction [Not Recovered/Not Resolved]
  - Necrosis ischaemic [Not Recovered/Not Resolved]
  - Cholecystectomy [Unknown]
  - Abdominal adhesions [Not Recovered/Not Resolved]
  - Catheter placement [Unknown]
  - Blister [Not Recovered/Not Resolved]
